FAERS Safety Report 4957580-7 (Version None)
Quarter: 2006Q1

REPORT INFORMATION
  Report Type: 
  Country: None (occurrence: None)
  Receive Date: 20060324
  Receipt Date: 20060313
  Transmission Date: 20060701
  Serious: Yes (Hospitalization, Other)
  Sender: FDA-Public Use
  Company Number: US200602004357

PATIENT
  Age: 64 Year
  Sex: Male
  Weight: 80.3 kg

DRUGS (11)
  1. CYMBALTA [Suspect]
     Indication: BIPOLAR I DISORDER
     Dosage: 60 MG,
     Dates: start: 20050813
  2. DEPAKOTE ER [Concomitant]
  3. CLONOPIN (CLONAZEPAM) [Concomitant]
  4. SEROQUEL [Concomitant]
  5. ALLOPURINOL [Concomitant]
  6. LIPITOR [Concomitant]
  7. ASA TABS (ACETYLSALICYLIC ACID) [Concomitant]
  8. PLAVIX [Concomitant]
  9. LASIX [Concomitant]
  10. COZAAR [Concomitant]
  11. NIFEDIPINE [Concomitant]

REACTIONS (2)
  - RASH GENERALISED [None]
  - SKIN EXFOLIATION [None]
